FAERS Safety Report 8206237-8 (Version None)
Quarter: 2012Q1

REPORT INFORMATION
  Report Type: 
  Country: None (occurrence: None)
  Receive Date: 20120313
  Receipt Date: 20120304
  Transmission Date: 20120608
  Serious: Yes (Life-Threatening)
  Sender: FDA-Public Use
  Company Number: JO-ROCHE-1045347

PATIENT
  Age: 48 Year
  Sex: Female

DRUGS (1)
  1. RITUXIMAB [Suspect]
     Indication: SYSTEMIC LUPUS ERYTHEMATOSUS
     Route: 041

REACTIONS (3)
  - HYPERHIDROSIS [None]
  - TACHYCARDIA [None]
  - HYPOTENSION [None]
